FAERS Safety Report 17647329 (Version 1)
Quarter: 2020Q2

REPORT INFORMATION
  Report Type: Spontaneous
  Country: US (occurrence: US)
  Receive Date: 20200408
  Receipt Date: 20200408
  Transmission Date: 20200713
  Serious: No
  Sender: FDA-Public Use
  Company Number: US-OPTINOSE US, INC-2020OPT000160

PATIENT
  Age: 58 Year
  Sex: Female
  Weight: 52.21 kg

DRUGS (3)
  1. XHANCE [Suspect]
     Active Substance: FLUTICASONE PROPIONATE
     Route: 045
     Dates: start: 202002
  2. TRAMADOL. [Concomitant]
     Active Substance: TRAMADOL
     Indication: BACK INJURY
     Route: 048
  3. XHANCE [Suspect]
     Active Substance: FLUTICASONE PROPIONATE
     Indication: MULTIPLE ALLERGIES
     Route: 045
     Dates: start: 20200129

REACTIONS (5)
  - Product dose omission [Unknown]
  - Device breakage [Unknown]
  - Product use in unapproved indication [Unknown]
  - Gastrooesophageal reflux disease [Recovered/Resolved]
  - Headache [Not Recovered/Not Resolved]

NARRATIVE: CASE EVENT DATE: 20200129
